FAERS Safety Report 9302802 (Version 1)
Quarter: 2013Q2

REPORT INFORMATION
  Report Type: Spontaneous
  Country: US (occurrence: US)
  Receive Date: 20130522
  Receipt Date: 20130522
  Transmission Date: 20140414
  Serious: Yes (Hospitalization)
  Sender: FDA-Public Use
  Company Number: US-BAYER-2013-061595

PATIENT
  Age: 22 Year
  Sex: Female
  Weight: 89.8 kg

DRUGS (5)
  1. YAZ [Suspect]
  2. BIOTIN [Concomitant]
     Dosage: 500 MG, QD
  3. MAGNESIUM [Concomitant]
     Dosage: 30 MG, QD
  4. THERAGRAN [VIT C,B5,B12,D2,B3,B6,VIT A,B2,B1 MONONITR,VIT E] [Concomitant]
     Dosage: 1000 MG, QD
  5. VITAMIN C [Concomitant]

REACTIONS (1)
  - Deep vein thrombosis [None]
